FAERS Safety Report 9537844 (Version 1)
Quarter: 2013Q3

REPORT INFORMATION
  Report Type: Report from Study
  Country: FR (occurrence: FR)
  Receive Date: 20130919
  Receipt Date: 20130919
  Transmission Date: 20140515
  Serious: Yes (Hospitalization)
  Sender: FDA-Public Use
  Company Number: PHHY2013FR103558

PATIENT
  Age: 65 Year
  Sex: Male

DRUGS (2)
  1. NEORAL [Suspect]
     Indication: PROPHYLAXIS AGAINST TRANSPLANT REJECTION
     Dosage: 250 MG, QD
     Route: 048
     Dates: start: 20110719
  2. CORTANCYL [Suspect]
     Indication: PROPHYLAXIS AGAINST TRANSPLANT REJECTION
     Dosage: 7.5 MG, QD
     Route: 048
     Dates: start: 20111118

REACTIONS (3)
  - Osteitis [Recovering/Resolving]
  - Skin ulcer [Recovering/Resolving]
  - Staphylococcal infection [Recovering/Resolving]
